FAERS Safety Report 14494021 (Version 2)
Quarter: 2018Q1

REPORT INFORMATION
  Report Type: Spontaneous
  Country: US (occurrence: US)
  Receive Date: 20180206
  Receipt Date: 20180212
  Transmission Date: 20180509
  Serious: Yes (Other)
  Sender: FDA-Public Use
  Company Number: US-PFIZER INC-2018048524

PATIENT
  Age: 76 Year
  Sex: Female

DRUGS (4)
  1. CARBOPLATIN. [Suspect]
     Active Substance: CARBOPLATIN
     Indication: OESOPHAGEAL SQUAMOUS CELL CARCINOMA
  2. CARBOPLATIN. [Suspect]
     Active Substance: CARBOPLATIN
     Indication: EPIGLOTTIC CARCINOMA
     Dosage: UNK, CYCLIC, (AUC = 2, WEEKLY)
  3. PACLITAXEL. [Suspect]
     Active Substance: PACLITAXEL
     Indication: OESOPHAGEAL SQUAMOUS CELL CARCINOMA
  4. PACLITAXEL. [Suspect]
     Active Substance: PACLITAXEL
     Indication: EPIGLOTTIC CARCINOMA
     Dosage: 50 MG/M2, WEEKLY

REACTIONS (3)
  - Dry mouth [Unknown]
  - Soft tissue necrosis [Unknown]
  - Oesophageal stenosis [Unknown]
